APPROVED DRUG PRODUCT: ISOLYTE P IN DEXTROSE 5% IN PLASTIC CONTAINER
Active Ingredient: DEXTROSE; MAGNESIUM CHLORIDE; POTASSIUM CHLORIDE; POTASSIUM PHOSPHATE, DIBASIC; SODIUM ACETATE
Strength: 5GM/100ML;31MG/100ML;130MG/100ML;26MG/100ML;320MG/100ML
Dosage Form/Route: INJECTABLE;INJECTION
Application: N019873 | Product #001
Applicant: B BRAUN MEDICAL INC
Approved: Jun 10, 1993 | RLD: No | RS: No | Type: RX